FAERS Safety Report 6164661-1 (Version None)
Quarter: 2009Q2

REPORT INFORMATION
  Report Type: 
  Country: None (occurrence: None)
  Receive Date: 20090423
  Receipt Date: 20090421
  Transmission Date: 20091009
  Serious: No
  Sender: FDA-Public Use
  Company Number: US-B.I. PHARMACEUTICALS,INC./RIDGEFIELD-2009-BP-04043BP

PATIENT
  Sex: Female

DRUGS (5)
  1. SPIRIVA [Suspect]
     Indication: CHRONIC OBSTRUCTIVE PULMONARY DISEASE
     Dosage: 18MCG
     Route: 055
     Dates: start: 20090301
  2. SPIRIVA [Suspect]
     Indication: DYSPNOEA
  3. COUMADIN [Concomitant]
     Indication: THROMBOSIS PROPHYLAXIS
     Route: 048
  4. COUMADIN [Concomitant]
     Indication: EMBOLISM
  5. LASIX [Concomitant]
     Indication: FLUID RETENTION
     Route: 048

REACTIONS (1)
  - DYSPNOEA [None]
